FAERS Safety Report 5562389-X (Version None)
Quarter: 2007Q4

REPORT INFORMATION
  Report Type: 
  Country: None (occurrence: None)
  Receive Date: 20071215
  Receipt Date: 20070612
  Transmission Date: 20080405
  Serious: No
  Sender: FDA-Public Use
  Company Number: US-AMGEN-US226052

PATIENT
  Sex: Female
  Weight: 87.2 kg

DRUGS (2)
  1. ENBREL [Suspect]
     Indication: RHEUMATOID ARTHRITIS
     Route: 058
     Dates: start: 20070516
  2. METHOTREXATE [Concomitant]
     Route: 065
     Dates: start: 20061101

REACTIONS (4)
  - DIZZINESS [None]
  - HEADACHE [None]
  - MIGRAINE [None]
  - MUSCULAR WEAKNESS [None]
